FAERS Safety Report 6546038-X (Version None)
Quarter: 2010Q1

REPORT INFORMATION
  Report Type: 
  Country: None (occurrence: None)
  Receive Date: 20100121
  Receipt Date: 20100121
  Transmission Date: 20100710
  Serious: No
  Sender: FDA-Public Use
  Company Number: None

PATIENT
  Age: 48 Year
  Sex: Female

DRUGS (2)
  1. HYDROMORPHONE HCL [Suspect]
     Indication: PROCEDURAL PAIN
     Dosage: 0.3 MG EVERY HOUR PRN IV
     Route: 042
  2. LORAZEPAM [Suspect]
     Dosage: 0.25 TO 0.5 MG EVERY 6 HOURS PRN IV
     Route: 042

REACTIONS (4)
  - DISORIENTATION [None]
  - HYPOVENTILATION [None]
  - OXYGEN SATURATION DECREASED [None]
  - UNRESPONSIVE TO STIMULI [None]
